FAERS Safety Report 5899803-6 (Version None)
Quarter: 2008Q3

REPORT INFORMATION
  Report Type: 
  Country: None (occurrence: None)
  Receive Date: 20080925
  Receipt Date: 20080914
  Transmission Date: 20090109
  Serious: Yes (Hospitalization)
  Sender: FDA-Public Use
  Company Number: 2008S1009162

PATIENT
  Age: 79 Year
  Sex: Female

DRUGS (3)
  1. PHOSPHOSODA FLAVOR NOT SPECIFIED [Suspect]
     Dosage: 45 ML; ;PO
     Route: 048
     Dates: start: 20050401, end: 20050401
  2. LIPITOR [Concomitant]
  3. DIVAN [Concomitant]

REACTIONS (13)
  - ANAEMIA [None]
  - ASTHENIA [None]
  - DEPRESSION [None]
  - DISCOMFORT [None]
  - FATIGUE [None]
  - INFLUENZA LIKE ILLNESS [None]
  - NAUSEA [None]
  - NEPHROCALCINOSIS [None]
  - NEUROPATHY PERIPHERAL [None]
  - ORGAN FAILURE [None]
  - PAIN [None]
  - RENAL FAILURE ACUTE [None]
  - RENAL FAILURE CHRONIC [None]
